FAERS Safety Report 7460854-1 (Version None)
Quarter: 2011Q2

REPORT INFORMATION
  Report Type: 
  Country: None (occurrence: None)
  Receive Date: 20110505
  Receipt Date: 20110426
  Transmission Date: 20111010
  Serious: Yes (Death)
  Sender: FDA-Public Use
  Company Number: US-PFIZER INC-2009308705

PATIENT
  Sex: Female
  Weight: 59.4 kg

DRUGS (14)
  1. CARVEDILOL [Concomitant]
     Dosage: 6.25 MG, 2X/DAY
     Route: 048
     Dates: start: 20081114
  2. TYLENOL (CAPLET) [Concomitant]
     Dosage: 1300 MG, AS NEEDED
     Route: 048
     Dates: start: 20040826
  3. LEVOTHYROXINE [Concomitant]
     Dosage: 0.075 MG, 1X/DAY
     Route: 048
     Dates: start: 20080501
  4. CHLORTHALIDONE [Concomitant]
     Dosage: 12.5 MG, 1X/DAY
     Route: 048
     Dates: start: 20090715
  5. CALCIUM [Concomitant]
     Dosage: 500 MG, 2X/DAY
     Route: 048
     Dates: start: 20010525
  6. NEXIUM [Concomitant]
     Indication: PROPHYLAXIS
     Dosage: UNK
     Route: 048
  7. LISINOPRIL [Concomitant]
     Dosage: 5 MG, QD HS
     Route: 048
     Dates: start: 20081114
  8. GABAPENTIN [Concomitant]
     Dosage: 600 MG, 2X/DAY
     Route: 048
     Dates: start: 20090902
  9. IBUPROFEN [Suspect]
     Indication: RHEUMATOID ARTHRITIS
     Dosage: 600 MG, 3X/DAY
     Route: 048
     Dates: start: 20070629, end: 20090101
  10. DARVOCET-N 50 [Concomitant]
     Dosage: 100 MG, AS NEEDED
     Route: 048
     Dates: start: 20000929
  11. ALENDRONATE SODIUM [Concomitant]
     Dosage: 70 MG, WEEKLY
     Route: 048
     Dates: start: 20090501
  12. FOLIC ACID [Concomitant]
     Dosage: 1 MG, 1X/DAY
     Route: 048
     Dates: start: 19950224
  13. SPIRONOLACTONE [Concomitant]
     Dosage: 12.5 MG, QD (3 DAYS/WK)
     Route: 048
     Dates: start: 20090715
  14. METHOTREXATE [Concomitant]
     Dosage: 20 MG, WEEKLY
     Route: 048
     Dates: start: 20000929

REACTIONS (1)
  - DEATH [None]
